FAERS Safety Report 13552952 (Version 1)
Quarter: 2017Q2

REPORT INFORMATION
  Report Type: Spontaneous
  Country: US (occurrence: US)
  Receive Date: 20170517
  Receipt Date: 20170517
  Transmission Date: 20170830
  Serious: Yes (Other)
  Sender: FDA-Public Use
  Company Number: US-PFIZER INC-2017209788

PATIENT
  Age: 47 Year
  Sex: Male
  Weight: 113 kg

DRUGS (1)
  1. VIAGRA [Suspect]
     Active Substance: SILDENAFIL CITRATE
     Indication: LIBIDO DECREASED
     Dosage: 50 MG, SINGLE
     Route: 048
     Dates: start: 20170507, end: 20170507

REACTIONS (4)
  - Genital hypoaesthesia [Not Recovered/Not Resolved]
  - Penile swelling [Recovered/Resolved]
  - Erection increased [Not Recovered/Not Resolved]
  - Product use in unapproved indication [Unknown]

NARRATIVE: CASE EVENT DATE: 20170507
